FAERS Safety Report 6356205-6 (Version None)
Quarter: 2009Q3

REPORT INFORMATION
  Report Type: 
  Country: None (occurrence: None)
  Receive Date: 20090911
  Receipt Date: 20090911
  Transmission Date: 20100115
  Serious: Yes (Other)
  Sender: FDA-Public Use
  Company Number: None

PATIENT
  Age: 5 Year
  Sex: Male
  Weight: 21.3191 kg

DRUGS (1)
  1. METADATE CD [Suspect]
     Indication: ATTENTION DEFICIT/HYPERACTIVITY DISORDER
     Dosage: 1 CAPSULE DAILY PO
     Route: 048
     Dates: start: 20090601, end: 20090909

REACTIONS (5)
  - CORNEAL REFLEX DECREASED [None]
  - EYELID FUNCTION DISORDER [None]
  - INSOMNIA [None]
  - LOGORRHOEA [None]
  - SUICIDAL IDEATION [None]
